FAERS Safety Report 9334601 (Version 1)
Quarter: 2013Q2

REPORT INFORMATION
  Report Type: Spontaneous
  Country: US (occurrence: US)
  Receive Date: 20130606
  Receipt Date: 20130606
  Transmission Date: 20140414
  Serious: No
  Sender: FDA-Public Use
  Company Number: US-AMGEN-USASP2013034767

PATIENT
  Age: 79 Year
  Sex: Female

DRUGS (9)
  1. PROLIA [Suspect]
     Indication: OSTEOPOROSIS
     Dosage: UNK
     Dates: start: 201304
  2. ARIMIDEX [Concomitant]
  3. PEPCID                             /00706001/ [Concomitant]
     Dosage: 2 TIMES IN WEEK
  4. VITAMIN E                          /00110501/ [Concomitant]
  5. FOLIC ACID [Concomitant]
  6. CRANBERRY                          /01512301/ [Concomitant]
  7. CALCIUM [Concomitant]
     Dosage: 300 MG, UNK
  8. VITAMIN D                          /00107901/ [Concomitant]
     Dosage: 2000 MG, QD
  9. VITAMIN B [Concomitant]

REACTIONS (1)
  - Pain in extremity [Not Recovered/Not Resolved]
